FAERS Safety Report 9829963 (Version 2)
Quarter: 2014Q2

REPORT INFORMATION
  Report Type: Spontaneous
  Country: BR (occurrence: BR)
  Receive Date: 20140120
  Receipt Date: 20140414
  Transmission Date: 20141212
  Serious: Yes (Other)
  Sender: FDA-Public Use
  Company Number: BR-AMGEN-BRASP2014003620

PATIENT
  Age: 62 Year
  Sex: Female
  Weight: 60 kg

DRUGS (6)
  1. PROLIA [Suspect]
     Indication: OSTEOPOROSIS
     Dosage: 60 MG, QD
     Route: 065
     Dates: start: 20131109, end: 20131109
  2. TIMOPTOL [Concomitant]
     Dosage: 1DROP PER DAY
     Route: 047
  3. ROSUVASTATIN CALCIUM [Concomitant]
     Dosage: 10 MG, QD
     Route: 048
     Dates: start: 2011
  4. LYRICA [Concomitant]
     Dosage: 75 MG ALTERNATE DAYS
     Route: 048
     Dates: start: 2009
  5. OSCAL D                            /00944201/ [Concomitant]
     Dosage: 1 DF, QD
     Route: 048
     Dates: start: 2010
  6. VITAMIN D                          /00107901/ [Concomitant]
     Dosage: UNK UNK, QD
     Dates: start: 2010

REACTIONS (4)
  - Oropharyngeal blistering [Recovered/Resolved]
  - Oral mucosal blistering [Recovered/Resolved]
  - Eating disorder [Recovered/Resolved]
  - Condition aggravated [Recovered/Resolved]
